FAERS Safety Report 4384176-0 (Version None)
Quarter: 2004Q2

REPORT INFORMATION
  Report Type: 
  Country: None (occurrence: None)
  Receive Date: 20040623
  Receipt Date: 20040623
  Transmission Date: 20050107
  Serious: No
  Sender: FDA-Public Use
  Company Number: None

PATIENT
  Sex: Female
  Weight: 67.6 kg

DRUGS (1)
  1. FERRLECIT [Suspect]
     Indication: ANAEMIA
     Dosage: 200 Q WEEK IV
     Route: 042

REACTIONS (7)
  - DYSARTHRIA [None]
  - DYSPNOEA [None]
  - ERYTHEMA [None]
  - OROPHARYNGEAL SWELLING [None]
  - SWELLING FACE [None]
  - SWOLLEN TONGUE [None]
  - WHEEZING [None]
